FAERS Safety Report 10900970 (Version 1)
Quarter: 2015Q1

REPORT INFORMATION
  Report Type: Spontaneous
  Country: US (occurrence: US)
  Receive Date: 20150310
  Receipt Date: 20150310
  Transmission Date: 20150721
  Serious: No
  Sender: FDA-Public Use
  Company Number: US-ASTRAZENECA-2015SE19113

PATIENT
  Age: 57 Year
  Sex: Female

DRUGS (8)
  1. BYDUREON [Suspect]
     Active Substance: EXENATIDE
     Indication: TYPE 2 DIABETES MELLITUS
     Dosage: EVERY WEEK
     Route: 058
     Dates: start: 20140424
  2. FLAXSEED [Concomitant]
     Active Substance: FLAX SEED
  3. SIMVASTATIN. [Concomitant]
     Active Substance: SIMVASTATIN
  4. METFORMIN [Concomitant]
     Active Substance: METFORMIN HYDROCHLORIDE
  5. MULTIVITAMIN [Concomitant]
     Active Substance: VITAMINS
  6. MELOXICAM. [Concomitant]
     Active Substance: MELOXICAM
  7. VITAMIN D3 [Concomitant]
     Active Substance: CHOLECALCIFEROL
  8. DARVON [Concomitant]
     Active Substance: PROPOXYPHENE HYDROCHLORIDE

REACTIONS (3)
  - Injection site extravasation [Unknown]
  - Underdose [Unknown]
  - Injection site haemorrhage [Unknown]

NARRATIVE: CASE EVENT DATE: 2014
